FAERS Safety Report 6686561-0 (Version None)
Quarter: 2010Q2

REPORT INFORMATION
  Report Type: 
  Country: None (occurrence: None)
  Receive Date: 20100415
  Receipt Date: 20100406
  Transmission Date: 20101027
  Serious: Yes (Death)
  Sender: FDA-Public Use
  Company Number: 2010AC000251

PATIENT
  Sex: Female

DRUGS (1)
  1. DIGOXIN [Suspect]
     Dates: start: 20060201, end: 20080101

REACTIONS (13)
  - ANXIETY [None]
  - CARDIAC FAILURE CONGESTIVE [None]
  - DEFORMITY [None]
  - DYSPNOEA [None]
  - ECONOMIC PROBLEM [None]
  - ELECTROCARDIOGRAM ABNORMAL [None]
  - HEART RATE DECREASED [None]
  - HYPOTENSION [None]
  - MULTIPLE INJURIES [None]
  - MYOCARDIAL INFARCTION [None]
  - PAIN [None]
  - RENAL FAILURE ACUTE [None]
  - THERAPEUTIC AGENT TOXICITY [None]
